FAERS Safety Report 4359142-1 (Version None)
Quarter: 2004Q2

REPORT INFORMATION
  Report Type: 
  Country: None (occurrence: None)
  Receive Date: 20040512
  Receipt Date: 20040428
  Transmission Date: 20050107
  Serious: Yes (Other)
  Sender: FDA-Public Use
  Company Number: DE-JNJFOC-20040405783

PATIENT
  Age: 14 Year
  Sex: Male
  Weight: 41 kg

DRUGS (5)
  1. REMICADE (INFLIXIMAB, RECOMBINANT) LYOPHILIZED POWDER [Suspect]
     Indication: CROHN'S DISEASE
     Dosage: 200 MG, INTRAVENOUS
     Route: 042
     Dates: start: 20021201, end: 20040424
  2. PENTASA [Concomitant]
  3. IMUREK (AZATHIOPRINE) [Concomitant]
  4. MUTAFLOR (ESCHERICHIA COLI) [Concomitant]
  5. SALOFALK (AMINOSALICYLIC ACID) [Concomitant]

REACTIONS (7)
  - ANAPHYLACTOID REACTION [None]
  - HEADACHE [None]
  - HYPERSENSITIVITY [None]
  - HYPOTENSION [None]
  - INFUSION RELATED REACTION [None]
  - NAUSEA [None]
  - PALLOR [None]
